FAERS Safety Report 6175859-0 (Version None)
Quarter: 2009Q2

REPORT INFORMATION
  Report Type: 
  Country: None (occurrence: None)
  Receive Date: 20090501
  Receipt Date: 20090427
  Transmission Date: 20091009
  Serious: Yes (Other)
  Sender: FDA-Public Use
  Company Number: US-AMGEN-US342259

PATIENT
  Sex: Female
  Weight: 80 kg

DRUGS (17)
  1. NPLATE [Suspect]
     Indication: IDIOPATHIC THROMBOCYTOPENIC PURPURA
     Route: 058
     Dates: start: 20090130, end: 20090226
  2. NPLATE [Suspect]
     Route: 058
     Dates: start: 20090226
  3. CORTICOSTEROIDS [Concomitant]
     Dates: start: 20090103, end: 20090206
  4. GLUCOSAMINE [Concomitant]
  5. ZETIA [Concomitant]
  6. CALCIUM [Concomitant]
  7. ASPIRIN [Concomitant]
  8. MULTI-VITAMINS [Concomitant]
  9. ARICEPT [Concomitant]
  10. NAMENDA [Concomitant]
  11. REQUIP [Concomitant]
  12. REMERON [Concomitant]
  13. NORVASC [Concomitant]
  14. PREDNISONE TAB [Concomitant]
  15. NEXIUM [Concomitant]
  16. FOLIC ACID [Concomitant]
  17. VITAMIN B-12 [Concomitant]

REACTIONS (1)
  - PLATELET COUNT INCREASED [None]
